FAERS Safety Report 5350579-0 (Version None)
Quarter: 2007Q2

REPORT INFORMATION
  Report Type: 
  Country: None (occurrence: None)
  Receive Date: 20070516
  Receipt Date: 20070307
  Transmission Date: 20071010
  Serious: Yes (Other)
  Sender: FDA-Public Use
  Company Number: 2007007226

PATIENT
  Age: 52 Year
  Sex: Male
  Weight: 108.9 kg

DRUGS (16)
  1. DEPO-PROVERA [Suspect]
     Indication: SEXUAL OFFENCE
     Dosage: SEE IMAGE
     Route: 030
     Dates: start: 19840620, end: 19840620
  2. DEPO-PROVERA [Suspect]
     Indication: SEXUAL OFFENCE
     Dosage: SEE IMAGE
     Route: 030
     Dates: start: 19861201, end: 19861201
  3. METFORMIN (METFORMIN) [Concomitant]
  4. WELLBUTRIN [Concomitant]
  5. ASPIRIN [Concomitant]
  6. GLIPIZIDE [Concomitant]
  7. LEXAPRO [Concomitant]
  8. CARITA (ACETYLSALICYLIC ACID) [Concomitant]
  9. ACIPHEC (RABEPRAZOLE SODIUM) [Concomitant]
  10. AVANDIA [Concomitant]
  11. CLONAZEPAM [Concomitant]
  12. LISNIOPRIL (LISINOPRIL) [Concomitant]
  13. REGLAN [Concomitant]
  14. ADVAIR DISKUS 100/50 [Concomitant]
  15. SINGULAIR DIECKMANN (MONTELUKAST SODIUM) [Concomitant]
  16. NASONEX [Concomitant]

REACTIONS (4)
  - INCREASED APPETITE [None]
  - PROSTATIC DISORDER [None]
  - THERAPEUTIC PRODUCT INEFFECTIVE FOR UNAPPROVED INDICATION [None]
  - WEIGHT INCREASED [None]
